FAERS Safety Report 6114231-6 (Version None)
Quarter: 2009Q1

REPORT INFORMATION
  Report Type: 
  Country: None (occurrence: None)
  Receive Date: 20090312
  Receipt Date: 20080812
  Transmission Date: 20090719
  Serious: No
  Sender: FDA-Public Use
  Company Number: US-ABBOTT-08P-163-0470640-00

PATIENT
  Sex: Male
  Weight: 106.69 kg

DRUGS (3)
  1. DEPAKOTE [Suspect]
     Indication: BIPOLAR DISORDER
  2. QUINAPRIL [Concomitant]
     Indication: HYPERTENSION
     Route: 048
  3. CHOLESTEROL MEDICINE [Concomitant]
     Indication: BLOOD CHOLESTEROL
     Route: 048

REACTIONS (1)
  - INFERTILITY MALE [None]
